FAERS Safety Report 4383005-9 (Version None)
Quarter: 2004Q2

REPORT INFORMATION
  Report Type: 
  Country: None (occurrence: None)
  Receive Date: 20040526
  Receipt Date: 20040106
  Transmission Date: 20050107
  Serious: No
  Sender: FDA-Public Use
  Company Number: 2004192894US

PATIENT

DRUGS (1)
  1. ELLENCE [Suspect]
     Dosage: IV
     Route: 042

REACTIONS (4)
  - CONJUNCTIVITIS [None]
  - EYE DISORDER [None]
  - NAUSEA [None]
  - VOMITING [None]
